FAERS Safety Report 8008678-0 (Version None)
Quarter: 2011Q4

REPORT INFORMATION
  Report Type: 
  Country: None (occurrence: None)
  Receive Date: 20111227
  Receipt Date: 20111220
  Transmission Date: 20120403
  Serious: Yes (Hospitalization)
  Sender: FDA-Public Use
  Company Number: FR-MERCK-1101FRA00151

PATIENT
  Age: 56 Year
  Sex: Male

DRUGS (16)
  1. EMEND [Suspect]
     Indication: PROPHYLAXIS OF NAUSEA AND VOMITING
     Route: 048
     Dates: start: 20090817, end: 20090817
  2. IFOSFAMIDE [Suspect]
     Indication: TERATOMA
     Route: 042
     Dates: start: 20090817, end: 20090819
  3. METHYLPREDNISOLONE SODIUM SUCCINATE [Suspect]
     Route: 042
     Dates: start: 20090817, end: 20090820
  4. TINZAPARIN SODIUM [Concomitant]
     Route: 065
  5. ONDANSETRON [Suspect]
     Route: 042
     Dates: start: 20090907
  6. EMEND [Suspect]
     Route: 048
     Dates: start: 20090818, end: 20090819
  7. MESNA [Suspect]
     Route: 042
     Dates: start: 20090907
  8. MESNA [Suspect]
     Route: 042
     Dates: start: 20090817, end: 20090820
  9. EMEND [Suspect]
     Route: 048
     Dates: start: 20090907
  10. DOXORUBICIN HCL [Suspect]
     Route: 042
     Dates: start: 20090907
  11. ONDANSETRON [Suspect]
     Route: 042
     Dates: start: 20090817, end: 20090820
  12. METOCLOPRAMIDE HCL [Suspect]
     Route: 042
     Dates: start: 20090907
  13. METHYLPREDNISOLONE SODIUM SUCCINATE [Suspect]
     Route: 042
     Dates: start: 20090907
  14. METHYLPREDNISOLONE SODIUM SUCCINATE [Suspect]
     Route: 042
     Dates: start: 20090817, end: 20090822
  15. IFOSFAMIDE [Suspect]
     Route: 042
     Dates: start: 20090907
  16. DOXORUBICIN HCL [Suspect]
     Indication: TERATOMA
     Route: 042
     Dates: start: 20090817, end: 20090818

REACTIONS (2)
  - ENCEPHALOPATHY [None]
  - DRUG INTERACTION [None]
